FAERS Safety Report 14082574 (Version 1)
Quarter: 2017Q4

REPORT INFORMATION
  Report Type: Spontaneous
  Country: US (occurrence: US)
  Receive Date: 20171012
  Receipt Date: 20171012
  Transmission Date: 20180321
  Serious: No
  Sender: FDA-Public Use
  Company Number: US-MYLANLABS-2017M1051434

PATIENT
  Age: 51 Year
  Sex: Female

DRUGS (1)
  1. ESTRADIOL. [Suspect]
     Active Substance: ESTRADIOL
     Indication: PRODUCT USED FOR UNKNOWN INDICATION
     Dosage: UNK, ONCE PER WEEK
     Route: 062

REACTIONS (4)
  - Abdominal distension [Unknown]
  - Alopecia [Unknown]
  - Feeling abnormal [Unknown]
  - Migraine [Unknown]
